FAERS Safety Report 20761472 (Version 1)
Quarter: 2022Q2

REPORT INFORMATION
  Report Type: Spontaneous
  Country: US (occurrence: US)
  Receive Date: 20220428
  Receipt Date: 20220428
  Transmission Date: 20220721
  Serious: Yes (Hospitalization)
  Sender: FDA-Public Use
  Company Number: US-BRISTOL-MYERS SQUIBB COMPANY-2022-022298

PATIENT
  Sex: Male

DRUGS (2)
  1. REVLIMID [Suspect]
     Active Substance: LENALIDOMIDE
     Indication: Plasma cell myeloma
     Dosage: 1 DAILY FOR 14 DAYS
     Route: 048
     Dates: start: 20170602
  2. REVLIMID [Suspect]
     Active Substance: LENALIDOMIDE

REACTIONS (1)
  - Illness [Unknown]
